FAERS Safety Report 6016986-8 (Version None)
Quarter: 2008Q4

REPORT INFORMATION
  Report Type: 
  Country: None (occurrence: None)
  Receive Date: 20081223
  Receipt Date: 20081216
  Transmission Date: 20090506
  Serious: Yes (Hospitalization)
  Sender: FDA-Public Use
  Company Number: DE-RANBAXY-2008RR-20073

PATIENT
  Sex: Female

DRUGS (7)
  1. METOPROLOL [Suspect]
     Dosage: 100 MG, UNK
     Route: 048
     Dates: start: 20070101, end: 20080627
  2. MELNEURIN [Suspect]
     Dosage: 25 MG, UNK
     Route: 048
     Dates: start: 20080606, end: 20080707
  3. METOHEXAL [Suspect]
     Dosage: 47.5 MG, UNK
     Route: 048
     Dates: start: 20080628
  4. VIREAD [Suspect]
     Dosage: 245 MG, UNK
     Route: 048
     Dates: start: 20080501
  5. ATACAND [Concomitant]
     Dosage: 16 MG, UNK
     Route: 048
     Dates: start: 20080101
  6. INSUMAN [Concomitant]
     Dosage: 32 IU, UNK
     Route: 058
     Dates: start: 20070101
  7. IANTUS [Concomitant]
     Dosage: 20 IU, UNK
     Route: 058
     Dates: start: 20070101

REACTIONS (1)
  - ACCOMMODATION DISORDER [None]
